FAERS Safety Report 17452638 (Version 1)
Quarter: 2020Q1

REPORT INFORMATION
  Report Type: Not Available
  Country: US (occurrence: US)
  Receive Date: 20200224
  Receipt Date: 20200224
  Transmission Date: 20200409
  Serious: No
  Sender: FDA-Public Use
  Company Number: US-NEUROCRINE BIOSCIENCES INC.-2020NBI00539

PATIENT
  Sex: Female

DRUGS (9)
  1. BENZTROPINE. [Concomitant]
     Active Substance: BENZTROPINE
  2. DICLOFENAC [Concomitant]
     Active Substance: DICLOFENAC
  3. EFFEXOR [Concomitant]
     Active Substance: VENLAFAXINE HYDROCHLORIDE
  4. PANTOPRAZOLE [Concomitant]
     Active Substance: PANTOPRAZOLE
  5. MIDODRINE [Concomitant]
     Active Substance: MIDODRINE
  6. VITAMIN B1 [Concomitant]
     Active Substance: THIAMINE HYDROCHLORIDE
  7. INGREZZA [Suspect]
     Active Substance: VALBENAZINE
     Indication: TARDIVE DYSKINESIA
     Route: 048
     Dates: start: 20191218
  8. PERPHENAZINE. [Concomitant]
     Active Substance: PERPHENAZINE
  9. TOPIRAMATE. [Concomitant]
     Active Substance: TOPIRAMATE

REACTIONS (2)
  - Loss of consciousness [Not Recovered/Not Resolved]
  - Restless legs syndrome [Not Recovered/Not Resolved]
